FAERS Safety Report 4849905-8 (Version None)
Quarter: 2005Q4

REPORT INFORMATION
  Report Type: 
  Country: None (occurrence: None)
  Receive Date: 20051115
  Receipt Date: 20050726
  Transmission Date: 20060501
  Serious: Yes (Other)
  Sender: FDA-Public Use
  Company Number: 412168

PATIENT
  Sex: Male

DRUGS (2)
  1. PEGASYS [Suspect]
  2. COPEGUS [Suspect]
     Dosage: ORAL
     Route: 048

REACTIONS (2)
  - DELUSION [None]
  - DRUG ABUSER [None]
